FAERS Safety Report 7735066-4 (Version None)
Quarter: 2011Q3

REPORT INFORMATION
  Report Type: 
  Country: None (occurrence: None)
  Receive Date: 20110907
  Receipt Date: 20110826
  Transmission Date: 20111222
  Serious: Yes (Death, Hospitalization, Other)
  Sender: FDA-Public Use
  Company Number: US-BAYER-201041680NA

PATIENT
  Age: 58 Year
  Sex: Male
  Weight: 91 kg

DRUGS (17)
  1. CRESTOR [Concomitant]
     Dosage: UNK UNK, QD
     Route: 048
  2. PLAVIX [Concomitant]
     Dosage: UNK UNK, QD
     Route: 048
  3. HUMALOG [Concomitant]
     Dosage: UNK UNK, QD
     Route: 058
  4. AVANDIA [Concomitant]
     Dosage: UNK UNK, QD
     Route: 048
  5. TRASYLOL [Suspect]
     Indication: TRICUSPID VALVE REPAIR
     Dosage: UNK
     Route: 042
     Dates: start: 20070803
  6. TRASYLOL [Suspect]
     Indication: VENTRICULAR ASSIST DEVICE INSERTION
  7. COREG [Concomitant]
     Dosage: UNK UNK, QD
     Route: 048
  8. LANTUS [Concomitant]
     Dosage: UNK UNK, QD
     Route: 058
  9. DIGOXIN [Concomitant]
     Dosage: UNK UNK, QD
     Route: 048
  10. SPIRONOLACTONE [Concomitant]
     Dosage: UNK UNK, QD
     Route: 048
  11. IMDUR [Concomitant]
     Dosage: UNK UNK, QD
     Route: 048
  12. AVAPRO [Concomitant]
     Dosage: UNK UNK, QD
     Route: 048
  13. NIASPAN [Concomitant]
     Dosage: UNK UNK, QD
     Route: 048
  14. ALBUTEROL SULFATE AUTOHALER [Concomitant]
     Dosage: UNK UNK, QD
     Route: 048
  15. TRASYLOL [Suspect]
     Indication: HEART TRANSPLANT
     Route: 042
     Dates: start: 20071031
  16. ZETIA [Concomitant]
     Route: 048
  17. FUROSEMIDE [Concomitant]
     Dosage: UNK UNK, QD
     Route: 048

REACTIONS (11)
  - DEATH [None]
  - STRESS [None]
  - UNEVALUABLE EVENT [None]
  - MULTI-ORGAN FAILURE [None]
  - RENAL FAILURE [None]
  - FEAR [None]
  - RENAL INJURY [None]
  - PAIN [None]
  - EMOTIONAL DISTRESS [None]
  - RENAL IMPAIRMENT [None]
  - ANXIETY [None]
